FAERS Safety Report 16744361 (Version 2)
Quarter: 2019Q3

REPORT INFORMATION
  Report Type: Spontaneous
  Country: IT (occurrence: IT)
  Receive Date: 20190827
  Receipt Date: 20190829
  Transmission Date: 20191005
  Serious: Yes (Life-Threatening, Hospitalization, Other)
  Sender: FDA-Public Use
  Company Number: IT-ACCORD-152841

PATIENT
  Age: 49 Year
  Sex: Male

DRUGS (8)
  1. RIBAVIRIN. [Concomitant]
     Active Substance: RIBAVIRIN
     Indication: HEPATITIS C
  2. EVEROLIMUS. [Concomitant]
     Active Substance: EVEROLIMUS
     Indication: HEPATITIS C
  3. SOFOSBUVIR [Concomitant]
     Active Substance: SOFOSBUVIR
     Indication: HEPATITIS C
  4. ABACAVIR/LAMIVUDINE [Concomitant]
     Indication: HIV INFECTION
  5. MYCOPHENOLATE MOFETIL/MYCOPHENOLATE SODIUM/MYCOPHENOLIC ACID [Concomitant]
     Indication: HEPATITIS C
  6. TACROLIMUS. [Suspect]
     Active Substance: TACROLIMUS
     Indication: HEPATITIS C
  7. LEVETIRACETAM. [Concomitant]
     Active Substance: LEVETIRACETAM
  8. RALTEGRAVIR. [Concomitant]
     Active Substance: RALTEGRAVIR
     Indication: HIV INFECTION

REACTIONS (5)
  - Klebsiella sepsis [Recovered/Resolved]
  - Hypomagnesaemia [Recovered/Resolved]
  - Liver abscess [Recovered/Resolved]
  - Klebsiella infection [Recovered/Resolved]
  - Posterior reversible encephalopathy syndrome [Recovered/Resolved]
